FAERS Safety Report 6313124-9 (Version None)
Quarter: 2009Q3

REPORT INFORMATION
  Report Type: 
  Country: None (occurrence: None)
  Receive Date: 20090818
  Receipt Date: 20090818
  Transmission Date: 20100115
  Serious: Yes (Other)
  Sender: FDA-Public Use
  Company Number: US-PFIZER INC-2009230706

PATIENT

DRUGS (1)
  1. XALATAN [Suspect]

REACTIONS (2)
  - INCORRECT STORAGE OF DRUG [None]
  - INTRAOCULAR PRESSURE INCREASED [None]
